FAERS Safety Report 8759952 (Version 1)
Quarter: 2012Q4

REPORT INFORMATION
  Report Type: 
  Country: FR (occurrence: FR)
  Receive Date: 20120829
  Receipt Date: 20120829
  Transmission Date: 20130627
  Serious: Yes (Hospitalization)
  Sender: FDA-Public Use
  Company Number: FR-GLAXOSMITHKLINE-B0823781A

PATIENT
  Age: 44 Year
  Sex: Female

DRUGS (2)
  1. AZANTAC [Suspect]
     Indication: PRODUCT USED FOR UNKNOWN INDICATION
     Route: 048
     Dates: start: 20120726
  2. AERIUS [Suspect]
     Indication: EYELID OEDEMA
     Dosage: 5MG Unknown
     Route: 048
     Dates: start: 20120726

REACTIONS (1)
  - Neutropenia [Recovering/Resolving]
